FAERS Safety Report 6852430-6 (Version None)
Quarter: 2010Q3

REPORT INFORMATION
  Report Type: 
  Country: None (occurrence: None)
  Receive Date: 20100717
  Receipt Date: 20071115
  Transmission Date: 20110219
  Serious: No
  Sender: FDA-Public Use
  Company Number: US-PFIZER INC-2007098092

PATIENT
  Sex: Female

DRUGS (2)
  1. CHANTIX [Suspect]
  2. ALL OTHER THERAPEUTIC PRODUCTS [Concomitant]

REACTIONS (5)
  - FEELING ABNORMAL [None]
  - HEADACHE [None]
  - INCORRECT DOSE ADMINISTERED [None]
  - STRESS [None]
  - WEIGHT ABNORMAL [None]
